FAERS Safety Report 24079726 (Version 1)
Quarter: 2024Q3

REPORT INFORMATION
  Report Type: Spontaneous
  Country: US (occurrence: US)
  Receive Date: 20240711
  Receipt Date: 20240711
  Transmission Date: 20241016
  Serious: No
  Sender: SANOFI AVENTIS
  Company Number: US-SA-SAC20240705000363

PATIENT
  Age: 74 Year
  Sex: Male
  Weight: 108 kg

DRUGS (2)
  1. DUPIXENT [Suspect]
     Active Substance: DUPILUMAB
     Indication: Dermatitis atopic
     Dosage: 300 MG, QOW
     Route: 058
     Dates: start: 20181107
  2. ADBRY [Concomitant]
     Active Substance: TRALOKINUMAB-LDRM

REACTIONS (1)
  - Eczema [Recovered/Resolved]

NARRATIVE: CASE EVENT DATE: 20240101
